FAERS Safety Report 25797681 (Version 1)
Quarter: 2025Q3

REPORT INFORMATION
  Report Type: Spontaneous
  Country: US (occurrence: US)
  Receive Date: 20250912
  Receipt Date: 20250912
  Transmission Date: 20251020
  Serious: No
  Sender: REGENERON
  Company Number: US-REGENERON PHARMACEUTICALS, INC.-2025-101456

PATIENT
  Sex: Female

DRUGS (1)
  1. EYLEA HD [Suspect]
     Active Substance: AFLIBERCEPT
     Indication: Retinal vein occlusion
     Dosage: UNK, EVERY TWO MONTHS (FORMULATION: HD VIAL)

REACTIONS (4)
  - Visual impairment [Not Recovered/Not Resolved]
  - Injection site pain [Unknown]
  - Off label use [Not Recovered/Not Resolved]
  - Drug effective for unapproved indication [Unknown]
